FAERS Safety Report 20374257 (Version 3)
Quarter: 2022Q1

REPORT INFORMATION
  Report Type: Spontaneous
  Country: ES (occurrence: ES)
  Receive Date: 20220125
  Receipt Date: 20220218
  Transmission Date: 20220423
  Serious: Yes (Hospitalization)
  Sender: FDA-Public Use
  Company Number: None

PATIENT
  Age: 72 Year
  Sex: Male

DRUGS (4)
  1. DOXORUBICIN HYDROCHLORIDE [Suspect]
     Active Substance: DOXORUBICIN HYDROCHLORIDE
     Dosage: UNK
     Route: 065
     Dates: start: 20210119
  2. RITUXIMAB [Suspect]
     Active Substance: RITUXIMAB
     Dosage: UNK
     Dates: start: 20210119
  3. CYCLOPHOSPHAMIDE [Suspect]
     Active Substance: CYCLOPHOSPHAMIDE
     Dosage: UNK
     Dates: start: 20210119
  4. VELCADE [Suspect]
     Active Substance: BORTEZOMIB
     Dosage: UNK
     Dates: start: 20210119

REACTIONS (1)
  - Febrile neutropenia [Unknown]

NARRATIVE: CASE EVENT DATE: 20210205
